FAERS Safety Report 8588161-4 (Version None)
Quarter: 2012Q3

REPORT INFORMATION
  Report Type: 
  Country: None (occurrence: None)
  Receive Date: 20120731
  Receipt Date: 20120717
  Transmission Date: 20120928
  Serious: Yes (Hospitalization)
  Sender: FDA-Public Use
  Company Number: UTC-021156

PATIENT
  Age: 69 Year
  Sex: Female
  Weight: 49.54 kg

DRUGS (3)
  1. ADCIRCA [Concomitant]
  2. REMODULIN [Suspect]
     Indication: PULMONARY HYPERTENSION
     Dosage: 239.04 UG/KG (0.166 UG/KG, 1 IN 1 MIN), SUBCUTANEOUS
     Route: 058
     Dates: start: 20090615
  3. TRACLEER [Concomitant]

REACTIONS (1)
  - INFUSION SITE INFECTION [None]
